FAERS Safety Report 5518975-6 (Version None)
Quarter: 2007Q4

REPORT INFORMATION
  Report Type: 
  Country: None (occurrence: None)
  Receive Date: 20071116
  Receipt Date: 20071105
  Transmission Date: 20080405
  Serious: Yes (Other)
  Sender: FDA-Public Use
  Company Number: PHHO2007BR18609

PATIENT
  Age: 51 Year
  Sex: Female

DRUGS (5)
  1. GALVUS MET [Suspect]
     Indication: DIABETES MELLITUS
     Route: 048
     Dates: start: 20070829
  2. CRESTOR [Concomitant]
  3. ACETYLSALICYLIC ACID SRT [Concomitant]
  4. LOSARTAN POTASSIUM [Concomitant]
  5. GINKGO BILOBA [Concomitant]

REACTIONS (5)
  - ERYSIPELAS [None]
  - ERYTHEMA [None]
  - OEDEMA PERIPHERAL [None]
  - PAIN [None]
  - PANNICULITIS [None]
